FAERS Safety Report 8927872 (Version 1)
Quarter: 2012Q4

REPORT INFORMATION
  Report Type: 
  Country: US (occurrence: US)
  Receive Date: 20121127
  Receipt Date: 20121127
  Transmission Date: 20130627
  Serious: Yes (Other)
  Sender: FDA-Public Use
  Company Number: US-ELI_LILLY_AND_COMPANY-US201211005485

PATIENT
  Age: 48 Year
  Sex: Female

DRUGS (2)
  1. ZYPREXA RELPREVV [Suspect]
     Indication: SCHIZOPHRENIA
     Dosage: 300 mg, UNK
     Dates: start: 20120430
  2. OLANZAPINE [Suspect]
     Indication: SCHIZOPHRENIA
     Dosage: UNK UNK, unknown

REACTIONS (5)
  - Delusion [Unknown]
  - Agitation [Unknown]
  - Aggression [Unknown]
  - Insomnia [Unknown]
  - Wrong technique in drug usage process [Unknown]
